FAERS Safety Report 9708915 (Version 2)
Quarter: 2013Q4

REPORT INFORMATION
  Report Type: Report from Study
  Country: CD (occurrence: CD)
  Receive Date: 20131125
  Receipt Date: 20131125
  Transmission Date: 20140711
  Serious: Yes (Death, Hospitalization, Other)
  Sender: FDA-Public Use
  Company Number: PHHY2012CD095768

PATIENT
  Sex: Female

DRUGS (4)
  1. GLIVEC [Suspect]
     Indication: CHRONIC MYELOID LEUKAEMIA
     Dosage: 400 MG, DAILY
  2. GLIVEC [Suspect]
     Dosage: 600 MG, DAILY
  3. ARA-C [Suspect]
     Dosage: UNK UKN, UNK
  4. ARA-C [Suspect]
     Dosage: UNK UKN, UNK

REACTIONS (7)
  - Death [Fatal]
  - Sepsis [Unknown]
  - Chronic myeloid leukaemia [Recovering/Resolving]
  - White blood cell count decreased [Unknown]
  - Platelet count decreased [Unknown]
  - Pancytopenia [Unknown]
  - Drug ineffective [Unknown]
